FAERS Safety Report 6652952-7 (Version None)
Quarter: 2010Q1

REPORT INFORMATION
  Report Type: 
  Country: None (occurrence: None)
  Receive Date: 20100326
  Receipt Date: 20100312
  Transmission Date: 20100710
  Serious: Yes (Hospitalization, Other)
  Sender: FDA-Public Use
  Company Number: PHEH2010US03130

PATIENT
  Sex: Female

DRUGS (1)
  1. EXJADE [Suspect]
     Indication: HEREDITARY SPHEROCYTOSIS
     Dosage: 750 MG/DAY
     Route: 048
     Dates: start: 20090908

REACTIONS (1)
  - SURGERY [None]
